FAERS Safety Report 20013649 (Version 2)
Quarter: 2021Q4

REPORT INFORMATION
  Report Type: Spontaneous
  Country: US (occurrence: US)
  Receive Date: 20211029
  Receipt Date: 20211111
  Transmission Date: 20220303
  Serious: No
  Sender: FDA-Public Use
  Company Number: US-AMGEN-USASP2021162441

PATIENT
  Sex: Female

DRUGS (1)
  1. REPATHA [Suspect]
     Active Substance: EVOLOCUMAB
     Indication: Product used for unknown indication
     Dosage: UNK
     Route: 065
     Dates: end: 2021

REACTIONS (6)
  - Dry mouth [Unknown]
  - Mobility decreased [Unknown]
  - Neck pain [Recovered/Resolved]
  - Pain in extremity [Recovered/Resolved]
  - Rhinorrhoea [Unknown]
  - Arthralgia [Recovered/Resolved]
